FAERS Safety Report 22278538 (Version 4)
Quarter: 2023Q2

REPORT INFORMATION
  Report Type: Report from Study
  Country: CN (occurrence: CN)
  Receive Date: 20230503
  Receipt Date: 20230622
  Transmission Date: 20230722
  Serious: Yes (Hospitalization)
  Sender: FDA-Public Use
  Company Number: CN-ANTENGENE-20230401630

PATIENT
  Age: 45 Year
  Sex: Male
  Weight: 65 kg

DRUGS (6)
  1. SELINEXOR [Suspect]
     Active Substance: SELINEXOR
     Indication: Diffuse large B-cell lymphoma
     Dosage: 60 MG, WEEKLY
     Route: 048
     Dates: start: 20221216, end: 20221229
  2. SELINEXOR [Suspect]
     Active Substance: SELINEXOR
     Dosage: 60 MG, WEEKLY
     Route: 048
     Dates: start: 20230119, end: 20230406
  3. ONATASERTIB [Suspect]
     Active Substance: ONATASERTIB
     Indication: Diffuse large B-cell lymphoma
     Dosage: 20 MG, QD
     Route: 048
     Dates: start: 20221216, end: 20221229
  4. ONATASERTIB [Suspect]
     Active Substance: ONATASERTIB
     Dosage: 20 MG, QD
     Route: 048
     Dates: start: 20230119, end: 20230413
  5. BAYER ASPIRIN [Concomitant]
     Active Substance: ASPIRIN
     Indication: Cerebrovascular accident
     Dosage: 100 MG, QD
     Route: 048
     Dates: start: 20230104
  6. ENTECAVIR [Concomitant]
     Active Substance: ENTECAVIR
     Indication: Hepatitis B
     Dosage: 0.5 MG, QD
     Route: 048
     Dates: start: 202301

REACTIONS (1)
  - Osteonecrosis [Recovered/Resolved]

NARRATIVE: CASE EVENT DATE: 20230414
